FAERS Safety Report 15736379 (Version 1)
Quarter: 2018Q4

REPORT INFORMATION
  Report Type: Spontaneous
  Country: NL (occurrence: NL)
  Receive Date: 20181218
  Receipt Date: 20181218
  Transmission Date: 20190205
  Serious: Yes (Hospitalization)
  Sender: FDA-Public Use
  Company Number: NL-ELI_LILLY_AND_COMPANY-NL201812006593

PATIENT
  Age: 51 Year
  Sex: Female

DRUGS (1)
  1. TALTZ [Suspect]
     Active Substance: IXEKIZUMAB
     Indication: CUTANEOUS SARCOIDOSIS
     Dosage: UNK, UNKNOWN
     Route: 065
     Dates: start: 20180912, end: 20181024

REACTIONS (3)
  - Encephalopathy [Recovered/Resolved with Sequelae]
  - Neurosarcoidosis [Recovered/Resolved with Sequelae]
  - Off label use [Recovered/Resolved]

NARRATIVE: CASE EVENT DATE: 20180912
